FAERS Safety Report 23338047 (Version 2)
Quarter: 2024Q1

REPORT INFORMATION
  Report Type: Spontaneous
  Country: US (occurrence: US)
  Receive Date: 20231226
  Receipt Date: 20240228
  Transmission Date: 20240409
  Serious: No
  Sender: FDA-Public Use
  Company Number: US-TAKEDA-2023TUS123837

PATIENT
  Sex: Female
  Weight: 54 kg

DRUGS (5)
  1. DEXILANT [Suspect]
     Active Substance: DEXLANSOPRAZOLE
     Indication: Impaired gastric emptying
     Dosage: 60 MILLIGRAM, QD
     Route: 065
  2. DEXILANT [Suspect]
     Active Substance: DEXLANSOPRAZOLE
     Indication: Immune system disorder
  3. DEXLANSOPRAZOLE [Suspect]
     Active Substance: DEXLANSOPRAZOLE
     Indication: Impaired gastric emptying
     Dosage: UNK UNK, QD
     Route: 065
  4. ORENCIA [Concomitant]
     Active Substance: ABATACEPT
     Dosage: UNK
  5. SIROLIMUS [Concomitant]
     Active Substance: SIROLIMUS
     Dosage: UNK

REACTIONS (2)
  - Product use in unapproved indication [Unknown]
  - No adverse event [Unknown]
